FAERS Safety Report 14868575 (Version 1)
Quarter: 2018Q2

REPORT INFORMATION
  Report Type: Spontaneous
  Country: AT (occurrence: AT)
  Receive Date: 20180509
  Receipt Date: 20180509
  Transmission Date: 20180711
  Serious: Yes (Hospitalization)
  Sender: FDA-Public Use
  Company Number: AT-ROCHE-2115836

PATIENT
  Age: 71 Year
  Sex: Male
  Weight: 82 kg

DRUGS (14)
  1. THIAMAZOL [Concomitant]
     Active Substance: METHIMAZOLE
     Dosage: 1/2 TABLET / WEEK
     Route: 065
  2. TORASEMID [Concomitant]
     Active Substance: TORSEMIDE
     Route: 065
  3. COTELLIC [Suspect]
     Active Substance: COBIMETINIB
     Dosage: 21 DAYS /DAILY
     Route: 048
     Dates: start: 20180426
  4. AMLODIPIN [Concomitant]
     Active Substance: AMLODIPINE BESYLATE
     Indication: HYPERTONIA
     Dosage: 1 TABLET
     Route: 048
  5. BISOPROLOL [Concomitant]
     Active Substance: BISOPROLOL
     Indication: HYPERTONIA
     Dosage: 1 TABLET
     Route: 048
  6. ZOFRAN [Concomitant]
     Active Substance: ONDANSETRON HYDROCHLORIDE
     Indication: PROPHYLAXIS
     Dosage: 2 TABLETS / DAY
     Route: 048
  7. TECENTRIQ [Suspect]
     Active Substance: ATEZOLIZUMAB
     Indication: RECTAL CANCER
     Route: 042
     Dates: start: 20180329
  8. BERODUAL DOSIER-AEROSOL [Concomitant]
  9. COTELLIC [Suspect]
     Active Substance: COBIMETINIB
     Indication: RECTAL CANCER
     Dosage: 21 DAYS /DAILY
     Route: 048
     Dates: start: 20180329, end: 20180421
  10. LISINOPRIL HCTZ [Concomitant]
     Active Substance: HYDROCHLOROTHIAZIDE\LISINOPRIL
     Indication: HYPERTONIA
     Route: 048
  11. XARELTO [Concomitant]
     Active Substance: RIVAROXABAN
     Indication: PROPHYLAXIS
     Dosage: 1 TABLET
     Route: 048
  12. DIGIMERCK [Concomitant]
     Active Substance: DIGITOXIN
     Indication: HYPERTONIA
     Dosage: 1 TABLET
     Route: 048
  13. SPIRIVA RESPIMAT [Concomitant]
     Active Substance: TIOTROPIUM BROMIDE
     Dosage: 2, 5 MCG
     Route: 065
  14. LISINOPRIL. [Concomitant]
     Active Substance: LISINOPRIL
     Route: 065

REACTIONS (5)
  - Respiratory failure [Unknown]
  - Off label use [Unknown]
  - Intentional product use issue [Unknown]
  - Dyspnoea [Recovered/Resolved]
  - Pleural effusion [Unknown]

NARRATIVE: CASE EVENT DATE: 20180421
